FAERS Safety Report 23010273 (Version 2)
Quarter: 2024Q3

REPORT INFORMATION
  Report Type: Spontaneous
  Country: US (occurrence: US)
  Receive Date: 20230929
  Receipt Date: 20240710
  Transmission Date: 20241017
  Serious: No
  Sender: SANOFI AVENTIS
  Company Number: US-SA-SAC20230927000902

PATIENT
  Age: 24 Year
  Sex: Female

DRUGS (11)
  1. DUPIXENT [Suspect]
     Active Substance: DUPILUMAB
     Indication: Asthma
     Dosage: 300 MG QOW
     Route: 058
     Dates: start: 20200317
  2. ALPRAZOLAM [Concomitant]
     Active Substance: ALPRAZOLAM
  3. AZITHROMYCIN [Concomitant]
     Active Substance: AZITHROMYCIN
  4. FLUCONAZOLE [Concomitant]
     Active Substance: FLUCONAZOLE
  5. IVERMECTIN [Concomitant]
     Active Substance: IVERMECTIN
  6. MONTELUKAST [Concomitant]
     Active Substance: MONTELUKAST SODIUM
  7. PREDNISONE [Concomitant]
     Active Substance: PREDNISONE
  8. VALACYCLOVIR [Concomitant]
     Active Substance: VALACYCLOVIR HYDROCHLORIDE
  9. TRIAMCINOLONE [Concomitant]
     Active Substance: TRIAMCINOLONE
  10. JUNEL FE 1/20 [Concomitant]
     Active Substance: ETHINYL ESTRADIOL\NORETHINDRONE ACETATE
  11. SODIUM SULFATE [Concomitant]
     Active Substance: SODIUM SULFATE

REACTIONS (2)
  - Impaired quality of life [Not Recovered/Not Resolved]
  - Drug ineffective [Unknown]
